FAERS Safety Report 8608894-0 (Version None)
Quarter: 2012Q3

REPORT INFORMATION
  Report Type: 
  Country: None (occurrence: None)
  Receive Date: 20120821
  Receipt Date: 20120213
  Transmission Date: 20120928
  Serious: Yes (Life-Threatening, Hospitalization, Disabling)
  Sender: FDA-Public Use
  Company Number: CH-ROCHE-1104470

PATIENT
  Age: 65 Year
  Sex: Female

DRUGS (8)
  1. PEMETREXED DISODIUM [Suspect]
     Indication: ADENOCARCINOMA
     Dosage: DATE OF LAST DOSE PRIOR TO SAE: 20/JAN/2012
     Route: 042
     Dates: start: 20111230
  2. CISPLATIN [Suspect]
     Indication: ADENOCARCINOMA
     Dosage: DATE OF LAST DOSE PRIOR TO SAE: 20/JAN/2012
     Route: 042
     Dates: start: 20111230
  3. AVASTIN [Suspect]
     Indication: ADENOCARCINOMA
     Dosage: DATE OF LAST DOSE PRIOR TO SAE: 20/JAN/2012
     Route: 042
     Dates: start: 20111230
  4. CRESTOR [Concomitant]
  5. DOLPASSE [Concomitant]
  6. POTASSIUM CHLORIDE [Concomitant]
  7. NORFLOXACIN [Concomitant]
     Dates: start: 20120329
  8. CARBOPLATIN [Suspect]
     Indication: ADENOCARCINOMA
     Dates: start: 20110214

REACTIONS (5)
  - HYPOKALAEMIA [None]
  - GENERAL PHYSICAL HEALTH DETERIORATION [None]
  - DIARRHOEA [None]
  - VOMITING [None]
  - ANAEMIA [None]
